FAERS Safety Report 9836903 (Version 1)
Quarter: 2013Q4

REPORT INFORMATION
  Report Type: Spontaneous
  Country: US (occurrence: None)
  Receive Date: 20131127
  Receipt Date: 20131127
  Transmission Date: 20140711
  Serious: No
  Sender: FDA-Public Use
  Company Number: 223226

PATIENT
  Age: 67 Year
  Sex: Female

DRUGS (6)
  1. PICATO [Suspect]
     Indication: HEAVY EXPOSURE TO ULTRAVIOLET LIGHT
     Dosage: 1/2 TUBE FOR ONE APPLICATION
     Route: 061
     Dates: start: 20130810, end: 20130810
  2. BLOOD PRESSURE PILLS [Concomitant]
  3. LIPITOR [Concomitant]
  4. GENERIC PROZAC [Concomitant]
  5. ASPIRIN [Concomitant]
  6. CALCIUM [Concomitant]

REACTIONS (8)
  - Application site pain [None]
  - Application site pain [None]
  - Application site erythema [None]
  - Application site swelling [None]
  - Application site vesicles [None]
  - Dysphonia [None]
  - Depressed mood [None]
  - Incorrect drug administration duration [None]
